FAERS Safety Report 6302676-0 (Version None)
Quarter: 2009Q3

REPORT INFORMATION
  Report Type: 
  Country: None (occurrence: None)
  Receive Date: 20090810
  Receipt Date: 20090730
  Transmission Date: 20100115
  Serious: Yes (Hospitalization)
  Sender: FDA-Public Use
  Company Number: US-KINGPHARMUSA00001-K200900907

PATIENT
  Age: 93 Year
  Sex: Female

DRUGS (11)
  1. ALTACE [Suspect]
     Indication: HYPERTENSION
     Dosage: 1.25 MG, QD
     Route: 048
  2. LANTUS [Suspect]
     Indication: TYPE 1 DIABETES MELLITUS
     Dosage: 20 IU, QD
     Route: 058
     Dates: end: 20081101
  3. LASIX [Concomitant]
     Indication: HYPERTENSION
     Dosage: 40 MG, UNK
     Route: 048
  4. NOCTAMID [Concomitant]
     Indication: INSOMNIA
     Route: 048
  5. RISPERDAL [Concomitant]
     Indication: AGITATION
     Route: 048
  6. OMEPRAZOLE [Concomitant]
     Dosage: 1 U, UNK
     Route: 048
  7. DISCOTRINE [Concomitant]
     Indication: CARDIAC FAILURE
     Dosage: 1 PATCH, UNK
     Route: 048
  8. KARDEGIC [Concomitant]
     Indication: HIP ARTHROPLASTY
     Dosage: 75 MG, UNK
     Route: 048
  9. DAFALGAN [Concomitant]
     Dosage: 4 G, UNK
     Route: 048
  10. AUGMENTIN [Concomitant]
     Dosage: 3 G, UNK
     Route: 048
     Dates: start: 20081028, end: 20081101
  11. CALCIPARINE [Concomitant]
     Indication: HIP ARTHROPLASTY
     Dosage: 15000 IU, UNK
     Route: 058

REACTIONS (4)
  - DYSPNOEA [None]
  - GENERAL PHYSICAL HEALTH DETERIORATION [None]
  - HYPOGLYCAEMIA [None]
  - RALES [None]
